FAERS Safety Report 4456003-4 (Version None)
Quarter: 2004Q3

REPORT INFORMATION
  Report Type: 
  Country: None (occurrence: None)
  Receive Date: 20040922
  Receipt Date: 20040723
  Transmission Date: 20050211
  Serious: Yes (Hospitalization)
  Sender: FDA-Public Use
  Company Number: JP-BRISTOL-MYERS SQUIBB COMPANY-12655668

PATIENT
  Age: 76 Year
  Sex: Male

DRUGS (13)
  1. GATIFLO TABS 100 MG [Suspect]
     Indication: PNEUMONIA
     Route: 048
     Dates: start: 20040308, end: 20040314
  2. FLOMOX [Suspect]
     Indication: PNEUMONIA
     Route: 048
     Dates: start: 20040304, end: 20040308
  3. DASEN [Concomitant]
     Route: 048
     Dates: start: 20040304, end: 20040314
  4. MEDICON [Concomitant]
     Route: 048
     Dates: start: 20040304, end: 20040314
  5. SHO-SAIKO-TO [Concomitant]
     Dosage: DOSAGE FORM-PACKETS
     Route: 048
     Dates: start: 19960610
  6. BROCIN [Concomitant]
     Route: 048
  7. DIART [Concomitant]
     Route: 048
     Dates: start: 19960610
  8. SLOW-K [Concomitant]
     Route: 048
     Dates: start: 19960610
  9. GASTER [Concomitant]
     Route: 048
     Dates: start: 19960610
  10. NU-LOTAN [Concomitant]
     Route: 048
     Dates: start: 19990621
  11. AMINOLEBAN [Concomitant]
     Dosage: DOSAGE FORM-PACKET
     Route: 048
     Dates: start: 19960610
  12. ZYLORIC [Concomitant]
     Route: 048
     Dates: start: 19960610
  13. BAKUMONDO-TO [Concomitant]
     Route: 048
     Dates: start: 20040304, end: 20040308

REACTIONS (1)
  - LIVER DISORDER [None]
